FAERS Safety Report 7267849-1 (Version None)
Quarter: 2011Q1

REPORT INFORMATION
  Report Type: 
  Country: None (occurrence: None)
  Receive Date: 20110201
  Receipt Date: 20110128
  Transmission Date: 20110831
  Serious: Yes (Hospitalization)
  Sender: FDA-Public Use
  Company Number: B0696944A

PATIENT
  Age: 62 Year
  Sex: Male

DRUGS (2)
  1. AVANDIA [Suspect]
     Dosage: 2MG PER DAY
     Route: 048
     Dates: start: 20030101, end: 20070101
  2. AVANDAMET [Suspect]
     Route: 048
     Dates: start: 20050101, end: 20060101

REACTIONS (4)
  - MYOCARDIAL INFARCTION [None]
  - DYSPNOEA [None]
  - MUSCLE SPASMS [None]
  - SEXUAL DYSFUNCTION [None]
